FAERS Safety Report 4348333-1 (Version None)
Quarter: 2004Q2

REPORT INFORMATION
  Report Type: 
  Country: None (occurrence: None)
  Receive Date: 20040427
  Receipt Date: 20040324
  Transmission Date: 20050107
  Serious: Yes (Hospitalization)
  Sender: FDA-Public Use
  Company Number: JP-GLAXOSMITHKLINE-B0328290A

PATIENT
  Age: 69 Year
  Sex: Female
  Weight: 51 kg

DRUGS (6)
  1. ZANTAC [Suspect]
     Indication: PREMEDICATION
     Dosage: 50MG PER DAY
     Route: 042
     Dates: start: 20040310, end: 20040310
  2. ORGADRONE [Concomitant]
     Indication: PREMEDICATION
     Dosage: 11.4MG PER DAY
     Route: 042
     Dates: start: 20040310, end: 20040310
  3. SEROTONE [Concomitant]
     Indication: PREMEDICATION
     Dosage: 10MG PER DAY
     Route: 042
     Dates: start: 20040310, end: 20040310
  4. GABEXATE MESILATE [Concomitant]
     Route: 065
  5. DOPAMINE HYDROCHLORIDE [Concomitant]
     Route: 065
     Dates: start: 20040310, end: 20040311
  6. CHEMOTHERAPY [Concomitant]
     Route: 065

REACTIONS (12)
  - ACTIVATED PARTIAL THROMBOPLASTIN TIME [None]
  - ANAPHYLACTIC SHOCK [None]
  - ANTITHROMBIN III DECREASED [None]
  - BLOOD FIBRINOGEN [None]
  - COAGULOPATHY [None]
  - FIBRIN D DIMER INCREASED [None]
  - INCONTINENCE [None]
  - INTERNATIONAL NORMALISED RATIO [None]
  - LOSS OF CONSCIOUSNESS [None]
  - MOANING [None]
  - PROTHROMBIN TIME RATIO [None]
  - VOMITING [None]
